FAERS Safety Report 5371601-1 (Version None)
Quarter: 2007Q2

REPORT INFORMATION
  Report Type: 
  Country: None (occurrence: None)
  Receive Date: 20070627
  Receipt Date: 20070615
  Transmission Date: 20071010
  Serious: Yes (Other)
  Sender: FDA-Public Use
  Company Number: US-JNJFOC-20070203992

PATIENT
  Sex: Female

DRUGS (20)
  1. REMICADE [Suspect]
     Route: 042
  2. REMICADE [Suspect]
     Route: 042
  3. REMICADE [Suspect]
     Route: 042
  4. REMICADE [Suspect]
     Route: 042
  5. REMICADE [Suspect]
     Indication: RHEUMATOID ARTHRITIS
     Route: 042
  6. OTHER ANTIBIOTICS FOR TOPICAL USE [Concomitant]
     Indication: RASH
  7. AZULFIDINE [Concomitant]
  8. NAPROXEN [Concomitant]
     Dosage: PRN
  9. PREVACID [Concomitant]
     Indication: STOMACH DISCOMFORT
  10. ALLEGRA D 24 HOUR [Concomitant]
  11. SYNTHROID [Concomitant]
  12. FLEXERIL [Concomitant]
  13. VALTREX [Concomitant]
  14. PREMPRO [Concomitant]
  15. ARIMIDEX [Concomitant]
     Indication: OESTROGEN THERAPY
  16. FOSAMAX [Concomitant]
     Route: 048
  17. OSTEO BI-FLEX [Concomitant]
  18. B6 [Concomitant]
  19. CALCIUM CHLORIDE [Concomitant]
  20. EQUIP COMPLEX VITAMINS [Concomitant]

REACTIONS (3)
  - MYCOSIS FUNGOIDES [None]
  - PAIN IN EXTREMITY [None]
  - SKIN CANCER [None]
